FAERS Safety Report 8507753-1 (Version None)
Quarter: 2012Q3

REPORT INFORMATION
  Report Type: 
  Country: None (occurrence: None)
  Receive Date: 20120709
  Receipt Date: 20120709
  Transmission Date: 20120928
  Serious: Yes (Other)
  Sender: FDA-Public Use
  Company Number: None

PATIENT
  Age: 70 Year
  Sex: Female
  Weight: 68.0396 kg

DRUGS (2)
  1. LORAZEPAM [Suspect]
     Indication: NERVOUSNESS
     Dosage: 1/4 PILL AS NEEDED MOUTH
     Route: 048
     Dates: start: 20120124
  2. AMBIEN [Suspect]
     Indication: SLEEP DISORDER THERAPY
     Dosage: 1/2 PILL BEDTIME MOUTH
     Route: 048
     Dates: start: 20120328

REACTIONS (2)
  - DEPRESSION [None]
  - SUICIDAL IDEATION [None]
